FAERS Safety Report 4368228-7 (Version None)
Quarter: 2004Q2

REPORT INFORMATION
  Report Type: 
  Country: None (occurrence: None)
  Receive Date: 20040602
  Receipt Date: 20040510
  Transmission Date: 20050107
  Serious: Yes (Death, Life-Threatening, Hospitalization)
  Sender: FDA-Public Use
  Company Number: MPSI-10212

PATIENT
  Age: 19 Month
  Sex: Female
  Weight: 90 kg

DRUGS (1)
  1. ALDURAZYME [Suspect]
     Indication: MUCOPOLYSACCHARIDOSIS IH
     Dosage: 0.58 MG/KG Q2WKS IV
     Route: 042
     Dates: start: 20031218, end: 20040101

REACTIONS (12)
  - CARDIAC ARREST [None]
  - COMPLICATIONS OF TRANSPLANT SURGERY [None]
  - CORD BLOOD TRANSPLANT THERAPY [None]
  - DIALYSIS [None]
  - HAEMORRHAGE INTRACRANIAL [None]
  - HYPERBILIRUBINAEMIA [None]
  - LABILE BLOOD PRESSURE [None]
  - PULMONARY HAEMORRHAGE [None]
  - RENAL FAILURE [None]
  - RESPIRATORY FAILURE [None]
  - SEPSIS [None]
  - VENOOCCLUSIVE DISEASE [None]
